FAERS Safety Report 4600160-3 (Version None)
Quarter: 2005Q1

REPORT INFORMATION
  Report Type: 
  Country: None (occurrence: None)
  Receive Date: 20050303
  Receipt Date: 20050216
  Transmission Date: 20050727
  Serious: Yes (Death)
  Sender: FDA-Public Use
  Company Number: RENA-10904

PATIENT
  Age: 40 Year
  Sex: Female

DRUGS (9)
  1. RENAGEL [Suspect]
     Indication: HYPERPHOSPHATAEMIA
     Dosage: 0.8 G TID PO
     Route: 048
     Dates: start: 20040201
  2. ASPERGIC [Concomitant]
  3. CITRALEX [Concomitant]
  4. KAYEXALATE [Concomitant]
  5. XANAX [Concomitant]
  6. ISOTEN [Concomitant]
  7. MIXTARD HUMAN 70/30 [Concomitant]
  8. ZESTRIL [Concomitant]
  9. VITAMIN B COMPLEX CAP [Concomitant]

REACTIONS (6)
  - ALANINE AMINOTRANSFERASE INCREASED [None]
  - ASPARTATE AMINOTRANSFERASE INCREASED [None]
  - BLOOD ALKALINE PHOSPHATASE INCREASED [None]
  - CEREBRAL ISCHAEMIA [None]
  - CHOLELITHIASIS [None]
  - GAMMA-GLUTAMYLTRANSFERASE INCREASED [None]
